FAERS Safety Report 5914519-5 (Version None)
Quarter: 2008Q4

REPORT INFORMATION
  Report Type: 
  Country: None (occurrence: None)
  Receive Date: 20081008
  Receipt Date: 20080925
  Transmission Date: 20090506
  Serious: Yes (Life-Threatening, Hospitalization)
  Sender: FDA-Public Use
  Company Number: RENA-1000211

PATIENT
  Age: 58 Year
  Sex: Male
  Weight: 69.5 kg

DRUGS (11)
  1. RENAGEL [Suspect]
     Indication: HYPERPHOSPHATAEMIA
     Dosage: 0.5 G, TID, ORAL; 0.75 G, TID, ORAL
     Route: 048
     Dates: start: 20050927, end: 20070513
  2. RENAGEL [Suspect]
     Indication: HYPERPHOSPHATAEMIA
     Dosage: 0.5 G, TID, ORAL; 0.75 G, TID, ORAL
     Route: 048
     Dates: start: 20070513, end: 20080110
  3. LASIX [Concomitant]
  4. THYRADIN-S (LEVOTHYROXINE SODIUM) TABLET [Concomitant]
  5. NEO-LOTAN (LOSARTAN POTASSIUM) TABLET [Concomitant]
  6. CALSLOT (MANIDIPINE HYDROCHLORIDE) TABLET [Concomitant]
  7. BAYASPIRIN (ACETYLSALICYLIC ACID) TABLET [Concomitant]
  8. NITOROL (ISOSORBIDE DINITRATE) CAPSULE [Concomitant]
  9. CALTAN (CALCIUM CARBONATE) TABLET [Concomitant]
  10. ZOLPIDEM TARTRATE [Concomitant]
  11. ROCALTROL (CALCITRIOL) INJECTION [Concomitant]

REACTIONS (5)
  - ACUTE ABDOMEN [None]
  - DIVERTICULAR PERFORATION [None]
  - DIVERTICULITIS [None]
  - DRUG INEFFECTIVE [None]
  - LEUKOPENIA [None]
